FAERS Safety Report 17469190 (Version 2)
Quarter: 2020Q2

REPORT INFORMATION
  Report Type: Spontaneous
  Country: US (occurrence: US)
  Receive Date: 20200227
  Receipt Date: 20200417
  Transmission Date: 20200713
  Serious: No
  Sender: FDA-Public Use
  Company Number: US-SA-2020SA046171

PATIENT
  Age: 71 Year
  Sex: Male

DRUGS (1)
  1. DUPIXENT [Suspect]
     Active Substance: DUPILUMAB
     Dosage: 300 MG, OTHER
     Route: 058
     Dates: start: 201912

REACTIONS (5)
  - Stomatitis [Unknown]
  - Oral pain [Unknown]
  - Lip swelling [Unknown]
  - Swelling of eyelid [Unknown]
  - Dizziness [Unknown]

NARRATIVE: CASE EVENT DATE: 20200203
